FAERS Safety Report 8174303-1 (Version None)
Quarter: 2012Q1

REPORT INFORMATION
  Report Type: 
  Country: None (occurrence: None)
  Receive Date: 20120229
  Receipt Date: 20120220
  Transmission Date: 20120608
  Serious: Yes (Death, Hospitalization)
  Sender: FDA-Public Use
  Company Number: US-JNJFOC-20111202991

PATIENT
  Sex: Male
  Weight: 70 kg

DRUGS (9)
  1. NIASPAN [Concomitant]
     Route: 048
     Dates: start: 20081003, end: 20111129
  2. GOLIMUMAB [Suspect]
     Indication: RHEUMATOID ARTHRITIS
     Route: 058
     Dates: start: 20070119
  3. NYQUIL [Concomitant]
     Route: 048
     Dates: start: 20081120
  4. MULTI-VITAMINS [Concomitant]
     Route: 048
  5. CHANTIX [Concomitant]
     Route: 048
     Dates: start: 20070611
  6. ASPIRIN [Concomitant]
     Route: 048
     Dates: start: 20100729, end: 20111129
  7. HYDROCHLOROTHIAZIDE [Concomitant]
     Route: 048
     Dates: start: 20110408
  8. GOLIMUMAB [Suspect]
     Route: 058
     Dates: start: 20111024, end: 20111024
  9. NAPROXEN (ALEVE) [Concomitant]
     Route: 048
     Dates: start: 20081003, end: 20111129

REACTIONS (11)
  - ATELECTASIS [None]
  - LYMPHADENOPATHY [None]
  - LUNG ADENOCARCINOMA STAGE IV [None]
  - PANCREATIC DISORDER [None]
  - HAEMOGLOBIN DECREASED [None]
  - BLOOD GLUCOSE INCREASED [None]
  - METASTASES TO LIVER [None]
  - AORTIC ARTERIOSCLEROSIS [None]
  - ABDOMINAL PAIN [None]
  - PLEURAL EFFUSION [None]
  - WEIGHT DECREASED [None]
